FAERS Safety Report 9118487 (Version 1)
Quarter: 2013Q1

REPORT INFORMATION
  Report Type: Spontaneous
  Country: US (occurrence: US)
  Receive Date: 20130219
  Receipt Date: 20130219
  Transmission Date: 20140127
  Serious: Yes (Hospitalization)
  Sender: FDA-Public Use
  Company Number: US-BRISTOL-MYERS SQUIBB COMPANY-17164963

PATIENT
  Age: 45 Year
  Sex: Female
  Weight: 87.98 kg

DRUGS (17)
  1. ABATACEPT SUBQ INJECTION 125MG/ML [Suspect]
     Indication: RHEUMATOID ARTHRITIS
     Dosage: INJ,ORENCIA
     Route: 058
     Dates: start: 20120408
  2. ALBUTEROL [Concomitant]
  3. CLARITIN [Concomitant]
  4. CLONAZEPAM [Concomitant]
  5. DEPAKOTE [Concomitant]
  6. FENTANYL [Concomitant]
  7. GABAPENTIN [Concomitant]
  8. METHOCARBAMOL [Concomitant]
  9. MIRTAZAPINE [Concomitant]
  10. MOTRIN [Concomitant]
  11. OXYCODONE [Concomitant]
  12. PHENERGAN [Concomitant]
  13. POTASSIUM [Concomitant]
  14. SYNTHROID [Concomitant]
  15. VITAMIN B12 [Concomitant]
  16. VITAMIN C [Concomitant]
  17. XANAX [Concomitant]

REACTIONS (1)
  - Sinusitis bacterial [Recovered/Resolved]
